FAERS Safety Report 7860438-7 (Version None)
Quarter: 2011Q4

REPORT INFORMATION
  Report Type: 
  Country: None (occurrence: None)
  Receive Date: 20111027
  Receipt Date: 20111021
  Transmission Date: 20120403
  Serious: Yes (Hospitalization)
  Sender: FDA-Public Use
  Company Number: PHHY2011US35932

PATIENT
  Sex: Male
  Weight: 67.13 kg

DRUGS (11)
  1. EXJADE [Suspect]
     Indication: SICKLE CELL ANAEMIA
     Dosage: 1000 MG, DAILY
     Route: 048
     Dates: start: 20090302, end: 20110914
  2. FUROSEMIDE [Concomitant]
     Dosage: 40 MG, QD
     Route: 048
     Dates: start: 20110909
  3. NEXIUM [Concomitant]
     Dosage: 40 MG, DAILY
     Route: 048
  4. FOLIC ACID [Concomitant]
     Dosage: 1 MG, UNK
  5. EXJADE [Suspect]
     Indication: METABOLIC DISORDER
  6. SULFASALAZINE [Concomitant]
     Dosage: 500 MG, UNK
     Route: 048
  7. ALLOPURINOL [Concomitant]
     Dosage: 30 MG, QD
     Route: 048
  8. NORCO [Concomitant]
     Dosage: 325 MG, Q6H
     Route: 048
  9. MORPHINE [Concomitant]
     Dosage: 60 MG,
     Route: 048
     Dates: start: 20110909
  10. CARISOPRODOL [Concomitant]
     Dosage: 1050 MG,
     Route: 048
     Dates: start: 20110909
  11. PROMETHAZINE [Concomitant]
     Dosage: 75 MG, TID
     Route: 048
     Dates: start: 20110909

REACTIONS (4)
  - CHEST PAIN [None]
  - FALL [None]
  - SICKLE CELL ANAEMIA WITH CRISIS [None]
  - FULL BLOOD COUNT DECREASED [None]
